FAERS Safety Report 8050418-3 (Version None)
Quarter: 2012Q1

REPORT INFORMATION
  Report Type: 
  Country: None (occurrence: None)
  Receive Date: 20120117
  Receipt Date: 20120105
  Transmission Date: 20120608
  Serious: Yes (Death)
  Sender: FDA-Public Use
  Company Number: FR-TEVA-316699ISR

PATIENT
  Sex: Female

DRUGS (8)
  1. VINCRISTINE [Suspect]
     Indication: LYMPHOMA
     Dosage: 2 MILLIGRAM;
     Route: 042
     Dates: start: 20111018, end: 20111018
  2. POLARAMINE [Suspect]
     Indication: PREMEDICATION
     Dosage: 1 DOSAGE FORMS;
     Route: 042
     Dates: start: 20111017, end: 20111017
  3. HYZAAR [Concomitant]
  4. MABTHERA [Suspect]
     Indication: LYMPHOMA
     Dosage: 700 MILLIGRAM;
     Route: 042
     Dates: start: 20111017, end: 20111017
  5. ACETAMINOPHEN [Suspect]
     Dosage: 1000 MILLIGRAM;
     Route: 048
     Dates: start: 20111017, end: 20111017
  6. LOPRESSOR [Suspect]
     Indication: HYPERTENSION
     Dosage: 200 MILLIGRAM;
     Route: 048
     Dates: start: 19810101
  7. MOTILIUM [Suspect]
     Indication: VOMITING
     Dosage: 3 DOSAGE FORMS;
     Route: 048
     Dates: start: 20111017, end: 20111018
  8. NEXIUM [Concomitant]
     Dosage: 1 DOSAGE FORMS;
     Route: 048

REACTIONS (5)
  - HAEMOGLOBIN DECREASED [None]
  - KLEBSIELLA SEPSIS [None]
  - CARDIAC ARREST [None]
  - SHOCK [None]
  - GASTROINTESTINAL HAEMORRHAGE [None]
